FAERS Safety Report 17640570 (Version 1)
Quarter: 2020Q2

REPORT INFORMATION
  Report Type: Spontaneous
  Country: FR (occurrence: FR)
  Receive Date: 20200408
  Receipt Date: 20200408
  Transmission Date: 20200713
  Serious: Yes (Other)
  Sender: FDA-Public Use
  Company Number: FR-MACLEODS PHARMACEUTICALS US LTD-MAC2020026038

PATIENT

DRUGS (20)
  1. SALINE [Concomitant]
     Active Substance: SODIUM CHLORIDE
     Indication: ANAEMIA
     Dosage: 500 MILLILITER
     Route: 065
  2. PARACETAMOL [Concomitant]
     Active Substance: ACETAMINOPHEN
     Indication: PRODUCT USED FOR UNKNOWN INDICATION
     Dosage: 1000 MILLIGRAM
     Route: 065
  3. REMIFENTANIL [Suspect]
     Active Substance: REMIFENTANIL
     Indication: ANAESTHESIA
     Dosage: UNK
     Route: 065
  4. PHENYLEPHRINE [Concomitant]
     Active Substance: PHENYLEPHRINE HYDROCHLORIDE
     Indication: PRODUCT USED FOR UNKNOWN INDICATION
     Dosage: 100 MICROGRAM, FIRST 30 MINUTES OF SURGERY
     Route: 065
  5. HYDROXYETHYL STARCH [Concomitant]
     Active Substance: HETASTARCH
     Indication: ANAEMIA
     Dosage: 1500 MILLILITER
     Route: 065
  6. ATROPINE. [Concomitant]
     Active Substance: ATROPINE
     Indication: NEUROMUSCULAR BLOCKADE
     Dosage: 0.75 MILLIGRAM
     Route: 065
  7. KETAMINE [Suspect]
     Active Substance: KETAMINE
     Indication: ANAESTHESIA
     Dosage: UNK, 0.15 MG/KG/HOUR
     Route: 042
  8. ATRACURIUM [Suspect]
     Active Substance: ATRACURIUM
     Indication: ANAESTHESIA
     Dosage: UNK, 0.5 MG/KG
     Route: 065
  9. REMIFENTANIL [Suspect]
     Active Substance: REMIFENTANIL
     Dosage: UNK, DOSE TITRATED
     Route: 065
  10. KETOPROFEN. [Concomitant]
     Active Substance: KETOPROFEN
     Indication: PRODUCT USED FOR UNKNOWN INDICATION
     Dosage: 100 MILLIGRAM
     Route: 065
  11. KETAMINE [Suspect]
     Active Substance: KETAMINE
     Dosage: UNK, 0.3MG/KG
     Route: 042
  12. PROPOFOL. [Suspect]
     Active Substance: PROPOFOL
     Dosage: UNK, DOSE TITRATED
     Route: 065
  13. LACTATED RINGER?S SOLUTION [Concomitant]
     Indication: PRODUCT USED FOR UNKNOWN INDICATION
     Dosage: 2 LITER, FIRST 30 MINUTES OF SURGERY, TOTAL 4.5 L DOSE
     Route: 065
  14. EPHEDRINE. [Concomitant]
     Active Substance: EPHEDRINE
     Indication: PRODUCT USED FOR UNKNOWN INDICATION
     Dosage: 12 MILLIGRAM, 30 MINS BEFORE SURGERY
     Route: 065
  15. MORPHINE [Concomitant]
     Active Substance: MORPHINE
     Indication: PRODUCT USED FOR UNKNOWN INDICATION
     Dosage: 5 MILLIGRAM
     Route: 065
  16. NALOXONE [Concomitant]
     Active Substance: NALOXONE
     Indication: PRODUCT USED FOR UNKNOWN INDICATION
     Dosage: 0.4 MILLIGRAM, INTRAVENOUS BOLUS INJECTION
     Route: 042
  17. NEOSTIGMINE. [Concomitant]
     Active Substance: NEOSTIGMINE METHYLSULFATE
     Indication: NEUROMUSCULAR BLOCKADE
     Dosage: 2.5 MILLIGRAM
     Route: 065
  18. LIDOCAINE. [Suspect]
     Active Substance: LIDOCAINE
     Dosage: UNK.,1.5 MG/KG/HOUR, INTRAVENOUS BOLUS
     Route: 042
  19. LIDOCAINE. [Suspect]
     Active Substance: LIDOCAINE
     Indication: ANAESTHESIA
     Dosage: UNK.,1.5 MG/KG, INTRAVENOUS BOLUS
     Route: 042
  20. PROPOFOL. [Suspect]
     Active Substance: PROPOFOL
     Indication: ANAESTHESIA
     Dosage: UNK
     Route: 065

REACTIONS (3)
  - Hypoalbuminaemia [Unknown]
  - Overdose [Unknown]
  - Hypoproteinaemia [Unknown]
